FAERS Safety Report 12584311 (Version 6)
Quarter: 2020Q1

REPORT INFORMATION
  Report Type: Report from Study
  Country: US (occurrence: US)
  Receive Date: 20160722
  Receipt Date: 20200124
  Transmission Date: 20200409
  Serious: Yes (Other)
  Sender: FDA-Public Use
  Company Number: PHHY2014US160375

PATIENT
  Age: 47 Year
  Sex: Male

DRUGS (2)
  1. GILENYA [Suspect]
     Active Substance: FINGOLIMOD HYDROCHLORIDE
     Indication: MULTIPLE SCLEROSIS
     Dosage: UNK, QD
     Route: 048
  2. LEVAQUIN [Concomitant]
     Active Substance: LEVOFLOXACIN
     Indication: CHEST PAIN
     Dosage: UNK
     Route: 065
     Dates: start: 20150730, end: 20150801

REACTIONS (9)
  - Cataract [Not Recovered/Not Resolved]
  - Cough [Recovered/Resolved]
  - Wheezing [Recovered/Resolved]
  - Musculoskeletal chest pain [Recovered/Resolved]
  - Fracture [Unknown]
  - Lymphocyte count decreased [Unknown]
  - Migraine [Not Recovered/Not Resolved]
  - Fall [Not Recovered/Not Resolved]
  - Patella fracture [Unknown]

NARRATIVE: CASE EVENT DATE: 20140815
